FAERS Safety Report 6030632-9 (Version None)
Quarter: 2009Q1

REPORT INFORMATION
  Report Type: 
  Country: None (occurrence: None)
  Receive Date: 20090106
  Receipt Date: 20090106
  Transmission Date: 20090719
  Serious: No
  Sender: FDA-Public Use
  Company Number: None

PATIENT
  Age: 62 Year
  Sex: Male
  Weight: 119.7496 kg

DRUGS (1)
  1. ROMIPLOSTIM 250MCG/0.5ML VIAL AMGEN [Suspect]
     Indication: IDIOPATHIC THROMBOCYTOPENIC PURPURA
     Dosage: 120MCG Q WEEK SQ
     Route: 058
     Dates: start: 20081028, end: 20081223

REACTIONS (1)
  - RASH [None]
